FAERS Safety Report 20326559 (Version 1)
Quarter: 2022Q1

REPORT INFORMATION
  Report Type: Spontaneous
  Country: IT (occurrence: IT)
  Receive Date: 20220112
  Receipt Date: 20220112
  Transmission Date: 20220423
  Serious: Yes (Other)
  Sender: FDA-Public Use
  Company Number: IT-NOVARTISPH-NVSC2022IT001297

PATIENT
  Age: 5 Month
  Sex: Female

DRUGS (2)
  1. CYCLOSPORINE [Suspect]
     Active Substance: CYCLOSPORINE
     Indication: Omenn syndrome
     Dosage: 3 MG/KG, QD
     Route: 041
  2. CYCLOSPORINE [Suspect]
     Active Substance: CYCLOSPORINE
     Dosage: UNK (INCREASED)
     Route: 041

REACTIONS (5)
  - Neonatal hepatomegaly [Recovering/Resolving]
  - Hypertension [Unknown]
  - Hepatic enzyme increased [Recovered/Resolved]
  - Product use in unapproved indication [Unknown]
  - Product use issue [Unknown]
